FAERS Safety Report 9656651 (Version 1)
Quarter: 2013Q4

REPORT INFORMATION
  Report Type: Spontaneous
  Country: US (occurrence: US)
  Receive Date: 20131030
  Receipt Date: 20131030
  Transmission Date: 20140711
  Serious: Yes (Hospitalization, Other)
  Sender: FDA-Public Use
  Company Number: US-JNJFOC-20131013846

PATIENT
  Age: 80 Year
  Sex: Male
  Weight: 75.3 kg

DRUGS (1)
  1. XARELTO [Suspect]
     Indication: ANTICOAGULANT THERAPY
     Route: 048
     Dates: start: 201310, end: 201310

REACTIONS (2)
  - Post procedural complication [Not Recovered/Not Resolved]
  - Penile haemorrhage [Recovering/Resolving]
